FAERS Safety Report 9804107 (Version 2)
Quarter: 2014Q1

REPORT INFORMATION
  Report Type: Spontaneous
  Country: US (occurrence: US)
  Receive Date: 20140108
  Receipt Date: 20140205
  Transmission Date: 20141002
  Serious: No
  Sender: FDA-Public Use
  Company Number: US-GILEAD-2014-0091303

PATIENT
  Sex: Male

DRUGS (2)
  1. SOVALDI [Suspect]
     Indication: PRODUCT USED FOR UNKNOWN INDICATION
     Dosage: UNK
     Route: 048
     Dates: start: 20140101
  2. METHADONE [Suspect]

REACTIONS (2)
  - Panic attack [Recovered/Resolved]
  - Drug interaction [Recovered/Resolved]
